FAERS Safety Report 10040664 (Version 1)
Quarter: 2014Q1

REPORT INFORMATION
  Report Type: Spontaneous
  Country: US (occurrence: None)
  Receive Date: 20140326
  Receipt Date: 20140326
  Transmission Date: 20141002
  Serious: No
  Sender: FDA-Public Use
  Company Number: None

PATIENT
  Age: 32 Year
  Sex: Female

DRUGS (1)
  1. OXYTROL [Suspect]
     Indication: DIARRHOEA
     Dosage: 1 PATCH, EVERY 3 DAYS, APPLIED TO A SURFACE, USUALLY THE SKIN
     Dates: start: 20140226, end: 20140322

REACTIONS (4)
  - Application site erythema [None]
  - Application site swelling [None]
  - Application site pruritus [None]
  - Application site irritation [None]
